FAERS Safety Report 4339487-1 (Version None)
Quarter: 2004Q2

REPORT INFORMATION
  Report Type: 
  Country: None (occurrence: None)
  Receive Date: 20040415
  Receipt Date: 20040223
  Transmission Date: 20050107
  Serious: Yes (Other)
  Sender: FDA-Public Use
  Company Number: US-ROCHE-359520

PATIENT
  Age: 14 Year
  Sex: Male
  Weight: 90.7 kg

DRUGS (2)
  1. ACCUTANE [Suspect]
     Dosage: DOSAGE REGIMEN REPORTED AS: QD.
     Route: 048
     Dates: start: 20040127, end: 20040217
  2. ACCUTANE [Suspect]
     Route: 048
     Dates: start: 20040329

REACTIONS (1)
  - MONONUCLEOSIS SYNDROME [None]
